FAERS Safety Report 13617849 (Version 1)
Quarter: 2017Q2

REPORT INFORMATION
  Report Type: Spontaneous
  Country: US (occurrence: US)
  Receive Date: 20170606
  Receipt Date: 20170606
  Transmission Date: 20170830
  Serious: No
  Sender: FDA-Public Use
  Company Number: US-TARO-2016TAR00372

PATIENT
  Age: 2 Year
  Sex: Female
  Weight: 13.61 kg

DRUGS (2)
  1. FEVERALL [Suspect]
     Active Substance: ACETAMINOPHEN
     Indication: PYREXIA
     Dosage: 80 MG, UNK
     Route: 054
     Dates: start: 20160423
  2. FEVERALL [Suspect]
     Active Substance: ACETAMINOPHEN
     Dosage: 160 UNK, UNK
     Route: 054

REACTIONS (2)
  - Drug ineffective [Recovering/Resolving]
  - Overdose [Not Recovered/Not Resolved]

NARRATIVE: CASE EVENT DATE: 20160424
